FAERS Safety Report 4864998-X (Version None)
Quarter: 2005Q4

REPORT INFORMATION
  Report Type: 
  Country: None (occurrence: None)
  Receive Date: 20051223
  Receipt Date: 20051214
  Transmission Date: 20060501
  Serious: Yes (Hospitalization)
  Sender: FDA-Public Use
  Company Number: PHNU2005DE04140

PATIENT
  Age: 71 Year
  Sex: Male

DRUGS (1)
  1. ZOMETA [Suspect]
     Dosage: 4 MG, ONCE/SINGLE
     Dates: start: 20051213, end: 20051213

REACTIONS (2)
  - EYE PAIN [None]
  - OPTIC NERVE INFARCTION [None]
